FAERS Safety Report 4636825-7 (Version None)
Quarter: 2005Q2

REPORT INFORMATION
  Report Type: 
  Country: None (occurrence: None)
  Receive Date: 20050414
  Receipt Date: 20050405
  Transmission Date: 20051028
  Serious: Yes (Death, Hospitalization)
  Sender: FDA-Public Use
  Company Number: 2005-01153

PATIENT
  Age: 48 Year
  Sex: Male

DRUGS (4)
  1. TESTOSTERONE PROPIONATE [Suspect]
     Indication: HYPOGONADISM MALE
     Dosage: 90 TO 120 AMPULES OF 50 MG/CYCLE
  2. NANDROLONE DECANOATE [Suspect]
     Dosage: 60 AMPULES OF 50 MG/CYLCE
  3. METANDIENONE (METANDIENONE) [Suspect]
     Dosage: 600 TABLET PER CYCLE, ORAL
     Route: 048
  4. PARABOLON [Suspect]
     Dosage: 60 AMPULES PER CYCLE

REACTIONS (4)
  - AORTIC STENOSIS [None]
  - DRUG WITHDRAWAL SYNDROME [None]
  - POST PROCEDURAL COMPLICATION [None]
  - RESPIRATORY FAILURE [None]
